FAERS Safety Report 19563857 (Version 2)
Quarter: 2021Q3

REPORT INFORMATION
  Report Type: Spontaneous
  Country: CH (occurrence: CH)
  Receive Date: 20210715
  Receipt Date: 20210923
  Transmission Date: 20211014
  Serious: Yes (Other)
  Sender: FDA-Public Use
  Company Number: CH-BAYER-2021-173507

PATIENT
  Age: 62 Year
  Sex: Female

DRUGS (1)
  1. ULTRAVIST [Suspect]
     Active Substance: IOPROMIDE
     Indication: COMPUTERISED TOMOGRAM
     Dosage: 80 ML, ONCE
     Route: 042
     Dates: start: 20210624, end: 20210624

REACTIONS (3)
  - Urticaria [Recovered/Resolved]
  - Dyspnoea [Recovered/Resolved]
  - Contrast media allergy [Recovered/Resolved]

NARRATIVE: CASE EVENT DATE: 20210624
